FAERS Safety Report 5882147-6 (Version None)
Quarter: 2008Q3

REPORT INFORMATION
  Report Type: 
  Country: None (occurrence: None)
  Receive Date: 20080912
  Receipt Date: 20080725
  Transmission Date: 20090109
  Serious: No
  Sender: FDA-Public Use
  Company Number: US-ABBOTT-08P-163-0465720-00

PATIENT
  Sex: Female
  Weight: 63.56 kg

DRUGS (1)
  1. HUMIRA [Suspect]
     Indication: PSORIASIS
     Route: 058
     Dates: start: 20080626

REACTIONS (6)
  - ACNE [None]
  - PAIN [None]
  - PRURITUS [None]
  - SCAB [None]
  - SKIN DISCOLOURATION [None]
  - SKIN ULCER [None]
